FAERS Safety Report 17997834 (Version 2)
Quarter: 2020Q4

REPORT INFORMATION
  Report Type: Spontaneous
  Country: FR (occurrence: FR)
  Receive Date: 20200709
  Receipt Date: 20201119
  Transmission Date: 20210113
  Serious: No
  Sender: FDA-Public Use
  Company Number: FR-SA-2020SA175203

PATIENT

DRUGS (3)
  1. CABLIVI [Suspect]
     Active Substance: CAPLACIZUMAB-YHDP
     Dosage: 10 MG
     Route: 058
     Dates: start: 20200623, end: 20200724
  2. CABLIVI [Suspect]
     Active Substance: CAPLACIZUMAB-YHDP
     Indication: THROMBOTIC THROMBOCYTOPENIC PURPURA
     Dosage: 10 MG
     Route: 042
     Dates: start: 20200622, end: 20200622
  3. PREDNISONE. [Suspect]
     Active Substance: PREDNISONE
     Indication: THROMBOTIC THROMBOCYTOPENIC PURPURA
     Dosage: 1 MG/KG, QD, IV THEN PO
     Dates: start: 20200622, end: 20200718

REACTIONS (2)
  - Platelet count increased [Recovering/Resolving]
  - Thrombocytosis [Recovering/Resolving]

NARRATIVE: CASE EVENT DATE: 20200624
